FAERS Safety Report 19734208 (Version 1)
Quarter: 2021Q3

REPORT INFORMATION
  Report Type: Spontaneous
  Country: JP (occurrence: JP)
  Receive Date: 20210824
  Receipt Date: 20210824
  Transmission Date: 20211014
  Serious: Yes (Other)
  Sender: FDA-Public Use
  Company Number: JP-AMGEN-JPNSP2021127859

PATIENT
  Age: 14 Year
  Sex: Female

DRUGS (5)
  1. BLINCYTO [Suspect]
     Active Substance: BLINATUMOMAB
     Dosage: 28 MICROGRAM, QD
     Route: 041
     Dates: start: 20200107, end: 20200203
  2. DECADRON [Concomitant]
     Active Substance: DEXAMETHASONE
     Indication: PROPHYLAXIS
     Dosage: UNK
     Dates: start: 20191119, end: 20191119
  3. BLINCYTO [Suspect]
     Active Substance: BLINATUMOMAB
     Dosage: 9 MICROGRAM, QD
     Route: 041
     Dates: start: 20191119, end: 20191125
  4. BLINCYTO [Suspect]
     Active Substance: BLINATUMOMAB
     Indication: B PRECURSOR TYPE ACUTE LEUKAEMIA
     Dosage: UNK
     Route: 041
  5. BLINCYTO [Suspect]
     Active Substance: BLINATUMOMAB
     Dosage: 28 MICROGRAM, QD
     Route: 041
     Dates: start: 20191126, end: 20191216

REACTIONS (1)
  - Acute lymphocytic leukaemia recurrent [Unknown]

NARRATIVE: CASE EVENT DATE: 2019
